FAERS Safety Report 23037057 (Version 4)
Quarter: 2023Q4

REPORT INFORMATION
  Report Type: Spontaneous
  Country: US (occurrence: US)
  Receive Date: 20231006
  Receipt Date: 20231121
  Transmission Date: 20240110
  Serious: Yes (Other)
  Sender: FDA-Public Use
  Company Number: US-GLAXOSMITHKLINE-US2023AMR135579

PATIENT

DRUGS (1)
  1. ZEJULA [Suspect]
     Active Substance: NIRAPARIB
     Indication: Ovarian cancer
     Dosage: 300 MG, QD
     Dates: end: 202310

REACTIONS (9)
  - Neutropenia [Unknown]
  - Myocardial ischaemia [Unknown]
  - White blood cell count decreased [Unknown]
  - Blood pressure increased [Recovering/Resolving]
  - Brain fog [Recovering/Resolving]
  - Gait disturbance [Recovering/Resolving]
  - Confusional state [Recovering/Resolving]
  - Haemoglobin decreased [Unknown]
  - Product use issue [Unknown]
